FAERS Safety Report 23762757 (Version 12)
Quarter: 2025Q4

REPORT INFORMATION
  Report Type: Report from Study
  Country: CO (occurrence: CO)
  Receive Date: 20240419
  Receipt Date: 20251021
  Transmission Date: 20260118
  Serious: Yes (Other)
  Sender: NOVARTIS
  Company Number: CO-002147023-NVSC2024CO083075

PATIENT
  Age: 60 Year
  Sex: Female
  Weight: 65 kg

DRUGS (13)
  1. TASIGNA [Suspect]
     Active Substance: NILOTINIB
     Indication: Philadelphia positive chronic myeloid leukaemia
     Dosage: 400 MG, Q12H
     Route: 048
     Dates: start: 20150101
  2. TASIGNA [Suspect]
     Active Substance: NILOTINIB
     Dosage: 1 DOSAGE FORM, Q12H (1 DOSAGE FORM OF 200 MG)
     Route: 048
  3. TASIGNA [Suspect]
     Active Substance: NILOTINIB
     Dosage: 200 MG, Q12H (IN THE MORNING AND AT NIGHT)
     Route: 048
     Dates: start: 2015
  4. TASIGNA [Suspect]
     Active Substance: NILOTINIB
     Dosage: 200 MG, Q12H (IN THE MORNING AND AT NIGHT)
     Route: 048
  5. TASIGNA [Suspect]
     Active Substance: NILOTINIB
     Dosage: 200 MG, Q12H
     Route: 048
  6. TASIGNA [Suspect]
     Active Substance: NILOTINIB
     Dosage: 800 MG, QD (11 YEARS AGO)
     Route: 065
  7. TASIGNA [Suspect]
     Active Substance: NILOTINIB
     Dosage: 2 OF 200 MG/ 400 MG
     Route: 048
  8. LEVOTHYROXINE [Concomitant]
     Active Substance: LEVOTHYROXINE
     Indication: Product used for unknown indication
     Dosage: 50 MG, (MONDAYS TO FRIDAYS)
     Route: 065
  9. LEVOTHYROXINE [Concomitant]
     Active Substance: LEVOTHYROXINE
     Dosage: 75 MG, (SATURDAYS AND SUNDAYS)
     Route: 065
  10. ROSUVASTATIN [Concomitant]
     Active Substance: ROSUVASTATIN
     Indication: Product used for unknown indication
     Dosage: 20 MG, QD
     Route: 065
  11. VITAMIN D NOS [Concomitant]
     Active Substance: CHOLECALCIFEROL\ERGOCALCIFEROL
     Indication: Product used for unknown indication
     Dosage: 5000 IU, (EVERY 4 DAYS)
     Route: 065
  12. CALCIUM CITRATE [Concomitant]
     Active Substance: CALCIUM CITRATE
     Indication: Product used for unknown indication
     Dosage: 1 DOSAGE FORM, QD
     Route: 065
  13. DENOSUMAB [Concomitant]
     Active Substance: DENOSUMAB
     Indication: Product used for unknown indication
     Dosage: 60 ML, EVERY 6 MONTH
     Route: 065

REACTIONS (29)
  - Nerve injury [Unknown]
  - Hyperhidrosis [Recovered/Resolved]
  - Osteoporosis [Unknown]
  - Herpes virus infection [Recovered/Resolved]
  - Rhinitis [Recovered/Resolved]
  - Facial paralysis [Not Recovered/Not Resolved]
  - Headache [Unknown]
  - Influenza [Recovered/Resolved]
  - Blepharospasm [Not Recovered/Not Resolved]
  - Pain [Recovered/Resolved]
  - Tongue disorder [Unknown]
  - Toxicity to various agents [Recovered/Resolved]
  - Pain in jaw [Unknown]
  - Drug intolerance [Unknown]
  - Memory impairment [Unknown]
  - Erythema [Unknown]
  - Gastroenteritis [Unknown]
  - Ear pain [Unknown]
  - Insomnia [Unknown]
  - Neck pain [Unknown]
  - Arthralgia [Unknown]
  - Glossitis [Unknown]
  - Viral infection [Unknown]
  - Malaise [Unknown]
  - Vomiting [Unknown]
  - Diarrhoea [Unknown]
  - Incorrect dose administered [Unknown]
  - Off label use [Unknown]
  - Skin burning sensation [Recovered/Resolved]

NARRATIVE: CASE EVENT DATE: 20240329
